FAERS Safety Report 19184303 (Version 2)
Quarter: 2022Q1

REPORT INFORMATION
  Report Type: Spontaneous
  Country: US (occurrence: US)
  Receive Date: 20210427
  Receipt Date: 20220316
  Transmission Date: 20220424
  Serious: Yes (Other)
  Sender: FDA-Public Use
  Company Number: US-GLAXOSMITHKLINE-US2021GSK092822

PATIENT
  Sex: Male

DRUGS (12)
  1. ZANTAC [Suspect]
     Active Substance: RANITIDINE HYDROCHLORIDE
     Indication: Dyspepsia
     Dosage: 75 MG, BID
     Route: 065
     Dates: start: 198501, end: 201311
  2. ZANTAC [Suspect]
     Active Substance: RANITIDINE HYDROCHLORIDE
     Indication: Dyspepsia
     Dosage: 75 MG, BID
     Route: 065
     Dates: start: 198501, end: 201311
  3. RANITIDINE [Suspect]
     Active Substance: RANITIDINE
     Indication: Dyspepsia
     Dosage: 10 MG, QD
     Route: 065
     Dates: start: 198501, end: 201311
  4. RANITIDINE [Suspect]
     Active Substance: RANITIDINE
     Dosage: UNK UNK, BID
     Route: 065
     Dates: start: 198501, end: 201311
  5. RANITIDINE HYDROCHLORIDE [Suspect]
     Active Substance: RANITIDINE HYDROCHLORIDE
     Indication: Dyspepsia
     Dosage: 10 MG, QD
     Route: 065
     Dates: start: 198501, end: 201311
  6. RANITIDINE HYDROCHLORIDE [Suspect]
     Active Substance: RANITIDINE HYDROCHLORIDE
     Dosage: UNK UNK, BID
     Route: 065
     Dates: start: 198501, end: 201311
  7. ZANTAC [Suspect]
     Active Substance: RANITIDINE HYDROCHLORIDE
     Indication: Dyspepsia
     Dosage: 75 MG, BID
     Route: 065
     Dates: start: 198501, end: 201311
  8. RANITIDINE [Suspect]
     Active Substance: RANITIDINE
     Indication: Dyspepsia
     Dosage: 75 MG, BID
     Route: 065
     Dates: start: 198501, end: 201311
  9. RANITIDINE [Suspect]
     Active Substance: RANITIDINE
     Dosage: 10 MG, QD
     Route: 065
     Dates: start: 198501, end: 201311
  10. RANITIDINE [Suspect]
     Active Substance: RANITIDINE
     Dosage: UNK UNK, BID
     Route: 065
     Dates: start: 198501, end: 201311
  11. RANITIDINE [Suspect]
     Active Substance: RANITIDINE
     Indication: Dyspepsia
     Dosage: 10 MG, QD
     Route: 065
     Dates: start: 198501, end: 201311
  12. RANITIDINE [Suspect]
     Active Substance: RANITIDINE
     Dosage: UNK UNK, BID
     Route: 065
     Dates: start: 198501, end: 201311

REACTIONS (2)
  - Prostate cancer [Unknown]
  - Oesophageal carcinoma [Unknown]
